FAERS Safety Report 8421314-4 (Version None)
Quarter: 2012Q2

REPORT INFORMATION
  Report Type: 
  Country: None (occurrence: None)
  Receive Date: 20120608
  Receipt Date: 20120531
  Transmission Date: 20120825
  Serious: Yes (Other)
  Sender: FDA-Public Use
  Company Number: PHEH2011US06254

PATIENT
  Sex: Female

DRUGS (2)
  1. GLEEVEC [Suspect]
     Indication: CHRONIC MYELOID LEUKAEMIA
     Dosage: 400 MG, DAILY
     Route: 048
     Dates: start: 20110907
  2. METFORMIN HCL [Concomitant]

REACTIONS (3)
  - MALIGNANT MELANOMA [None]
  - NAUSEA [None]
  - CONCOMITANT DISEASE PROGRESSION [None]
